FAERS Safety Report 9084743 (Version 2)
Quarter: 2013Q1

REPORT INFORMATION
  Report Type: Spontaneous
  Country: US (occurrence: US)
  Receive Date: 20130131
  Receipt Date: 20130225
  Transmission Date: 20140127
  Serious: Yes (Death, Hospitalization)
  Sender: FDA-Public Use
  Company Number: US-GILEAD-2013-0068796

PATIENT
  Sex: Female

DRUGS (9)
  1. LETAIRIS [Suspect]
     Indication: PULMONARY HYPERTENSION
     Dosage: 5 MG, QD
     Route: 048
     Dates: start: 20110630
  2. LETAIRIS [Suspect]
     Indication: MYOCARDIAL ISCHAEMIA
  3. LETAIRIS [Suspect]
     Indication: AORTIC VALVE DISEASE
  4. OMEPRAZOLE [Concomitant]
     Dosage: 20 MG, QD
     Route: 048
  5. LEVOTHYROXINE [Concomitant]
     Dosage: 25 ?G, QD
  6. ASPIRIN [Concomitant]
  7. SENSIPAR [Concomitant]
     Dosage: 30 MG, QD
  8. COUMADIN                           /00014802/ [Concomitant]
  9. OXYGEN [Concomitant]

REACTIONS (6)
  - Septic shock [Fatal]
  - Sepsis [Fatal]
  - Coagulopathy [Fatal]
  - Renal failure chronic [Fatal]
  - Atrial fibrillation [Fatal]
  - Intestinal ischaemia [Unknown]
